FAERS Safety Report 19030772 (Version 1)
Quarter: 2021Q1

REPORT INFORMATION
  Report Type: Spontaneous
  Country: US (occurrence: US)
  Receive Date: 20210319
  Receipt Date: 20210319
  Transmission Date: 20210420
  Serious: No
  Sender: FDA-Public Use
  Company Number: None

PATIENT
  Age: 33 Year
  Weight: 72 kg

DRUGS (1)
  1. LAMOTRIGINE ORALLY DISINTEGRATING TABLETS 200 MG [Suspect]
     Active Substance: LAMOTRIGINE
     Indication: BIPOLAR I DISORDER
     Dosage: ?          QUANTITY:1 TABLET(S);?
     Route: 048
     Dates: start: 20210302, end: 20210318

REACTIONS (16)
  - Syncope [None]
  - Drug ineffective [None]
  - Dissociation [None]
  - Tremor [None]
  - Insomnia [None]
  - Sleep talking [None]
  - Vision blurred [None]
  - Anxiety [None]
  - Anger [None]
  - Headache [None]
  - Panic attack [None]
  - Mania [None]
  - Dizziness [None]
  - Crying [None]
  - Product formulation issue [None]
  - Euphoric mood [None]

NARRATIVE: CASE EVENT DATE: 20210318
